FAERS Safety Report 25200489 (Version 1)
Quarter: 2025Q2

REPORT INFORMATION
  Report Type: Report from Study
  Country: US (occurrence: US)
  Receive Date: 20250415
  Receipt Date: 20250415
  Transmission Date: 20250717
  Serious: Yes (Hospitalization)
  Sender: BAYER
  Company Number: US-BAYER-2025A045720

PATIENT
  Age: 74 Year
  Sex: Male

DRUGS (1)
  1. STIVARGA [Suspect]
     Active Substance: REGORAFENIB MONOHYDRATE
     Indication: Gastrointestinal stromal tumour
     Dosage: TAKE 4 40MG TABLETS BY MOUTH EVERY DAY FOR 21 DAYS THEN OFF 7 DAYS
     Route: 048
     Dates: start: 20250226, end: 20250331

REACTIONS (2)
  - Dizziness [Unknown]
  - Therapy cessation [None]

NARRATIVE: CASE EVENT DATE: 20250301
